FAERS Safety Report 8294845-8 (Version None)
Quarter: 2012Q2

REPORT INFORMATION
  Report Type: 
  Country: None (occurrence: None)
  Receive Date: 20120418
  Receipt Date: 20120416
  Transmission Date: 20120825
  Serious: No
  Sender: FDA-Public Use
  Company Number: US-PFIZER INC-2012094578

PATIENT
  Sex: Female
  Weight: 88.435 kg

DRUGS (2)
  1. MULTI-VITAMINS [Concomitant]
     Dosage: UNK
  2. IBUPROFEN (ADVIL) [Suspect]
     Indication: ARTHRALGIA
     Dosage: 400 MG, 2X/DAY
     Route: 048
     Dates: start: 20110301

REACTIONS (2)
  - OEDEMA PERIPHERAL [None]
  - PAIN [None]
